FAERS Safety Report 20085346 (Version 1)
Quarter: 2021Q4

REPORT INFORMATION
  Report Type: Spontaneous
  Country: DE (occurrence: DE)
  Receive Date: 20211118
  Receipt Date: 20211118
  Transmission Date: 20220303
  Serious: Yes (Hospitalization)
  Sender: FDA-Public Use
  Company Number: DE-ADRED-07178-01

PATIENT
  Age: 79 Year
  Sex: Male
  Weight: 108 kg

DRUGS (7)
  1. CANDESARTAN CILEXETIL\HYDROCHLOROTHIAZIDE [Suspect]
     Active Substance: CANDESARTAN CILEXETIL\HYDROCHLOROTHIAZIDE
     Indication: Product used for unknown indication
     Dosage: 16|12.5 MG, 2-0-0-0, TABLETTEN
     Route: 048
  2. BISOPROLOL FUMARATE\HYDROCHLOROTHIAZIDE [Suspect]
     Active Substance: BISOPROLOL FUMARATE\HYDROCHLOROTHIAZIDE
     Indication: Product used for unknown indication
     Dosage: 125|.5 MG, 0-0-1-0, TABLETTEN
     Route: 048
  3. ASPIRIN [Concomitant]
     Active Substance: ASPIRIN
     Dosage: 100 MILLIGRAM, QD, 0-1-0-0, TABLETTEN
     Route: 048
  4. ESOMEPRAZOL                        /01479301/ [Concomitant]
     Dosage: 40 MILLIGRAM, QD, 1-0-0-0, TABLETTEN
     Route: 048
  5. ATORVASTATIN [Concomitant]
     Active Substance: ATORVASTATIN
     Dosage: 20 MILLIGRAM, QD
     Route: 048
  6. AMLODIPIN                          /00972401/ [Concomitant]
     Dosage: 10 MILLIGRAM, QD, 10 MG, 0-0-1-0, TABLETTEN
     Route: 048
  7. ALLOPURINOL [Concomitant]
     Active Substance: ALLOPURINOL
     Dosage: 300 MILLIGRAM, QD
     Route: 048

REACTIONS (9)
  - Night sweats [Recovering/Resolving]
  - Product prescribing error [Unknown]
  - Fatigue [Recovering/Resolving]
  - Constipation [Recovering/Resolving]
  - Asthenia [Recovering/Resolving]
  - Weight decreased [Recovering/Resolving]
  - General physical health deterioration [Recovering/Resolving]
  - Abnormal faeces [Recovering/Resolving]
  - Initial insomnia [Recovering/Resolving]
